FAERS Safety Report 5158770-3 (Version None)
Quarter: 2006Q4

REPORT INFORMATION
  Report Type: 
  Country: None (occurrence: None)
  Receive Date: 20061128
  Receipt Date: 20061115
  Transmission Date: 20070319
  Serious: Yes (Other)
  Sender: FDA-Public Use
  Company Number: 2006GB02077

PATIENT
  Age: 77 Year
  Sex: Male

DRUGS (2)
  1. SEROQUEL [Suspect]
     Indication: DEMENTIA
     Route: 048
     Dates: start: 20061009, end: 20061011
  2. AMISULPRIDE [Concomitant]
     Route: 048
     Dates: start: 20060824

REACTIONS (2)
  - AGITATION [None]
  - DISORIENTATION [None]
